FAERS Safety Report 4268650-3 (Version None)
Quarter: 2004Q1

REPORT INFORMATION
  Report Type: 
  Country: None (occurrence: None)
  Receive Date: 20040112
  Receipt Date: 20040105
  Transmission Date: 20041129
  Serious: Yes (Hospitalization)
  Sender: FDA-Public Use
  Company Number: WAES 0401FIN00002

PATIENT
  Age: 64 Year
  Sex: Female

DRUGS (7)
  1. ALLOPURINOL [Concomitant]
     Indication: GOUT
     Route: 048
  2. AMILORIDE HYDROCHLORIDE AND HYDROCHLOROTHIAZIDE [Concomitant]
  3. ESTRADIOL AND NORETHINDRONE ACETATE [Concomitant]
  4. FLUTICASONE PROPIONATE AND SALMETEROL XINAFOATE [Concomitant]
     Route: 055
  5. SINGULAIR [Concomitant]
     Route: 048
  6. VIOXX [Suspect]
     Route: 048
     Dates: start: 20031128, end: 20031208
  7. THEOPHYLLINE [Concomitant]
     Route: 048

REACTIONS (1)
  - DERMATITIS [None]
